FAERS Safety Report 25188925 (Version 6)
Quarter: 2025Q2

REPORT INFORMATION
  Report Type: Spontaneous
  Country: JP (occurrence: JP)
  Receive Date: 20250411
  Receipt Date: 20250515
  Transmission Date: 20250717
  Serious: Yes (Hospitalization)
  Sender: MERCK SHARP & DOHME LLC
  Company Number: JP-009507513-2274836

PATIENT
  Age: 7 Decade
  Sex: Female
  Weight: 58 kg

DRUGS (3)
  1. PREVYMIS [Interacting]
     Active Substance: LETERMOVIR
     Indication: Antiviral prophylaxis
     Dosage: ONCE A DAY, AFTER BREAKFAST/ 480 MG EACH TIME
     Route: 048
     Dates: start: 20250410
  2. PREVYMIS [Interacting]
     Active Substance: LETERMOVIR
     Indication: Antiviral prophylaxis
     Dosage: ONCE A DAY, AFTER BREAKFAST/ 480 MG EACH TIME
     Route: 048
     Dates: start: 20250404, end: 20250407
  3. REPAGLINIDE [Interacting]
     Active Substance: REPAGLINIDE
     Indication: Type 2 diabetes mellitus
     Route: 048
     Dates: start: 20250326, end: 20250406

REACTIONS (2)
  - Hypoglycaemia [Recovered/Resolved]
  - Drug interaction [Unknown]

NARRATIVE: CASE EVENT DATE: 20250404
